FAERS Safety Report 8801494 (Version 2)
Quarter: 2015Q1

REPORT INFORMATION
  Report Type: Report from Study
  Country: US (occurrence: US)
  Receive Date: 20120921
  Receipt Date: 20150325
  Transmission Date: 20150721
  Serious: Yes (Death)
  Sender: FDA-Public Use
  Company Number: US-ROCHE-1126496

PATIENT
  Sex: Female
  Weight: 85 kg

DRUGS (6)
  1. ALOXI [Concomitant]
     Active Substance: PALONOSETRON HYDROCHLORIDE
     Route: 042
  2. ZOMETA [Concomitant]
     Active Substance: ZOLEDRONIC ACID
     Route: 042
  3. AVASTIN [Suspect]
     Active Substance: BEVACIZUMAB
     Indication: BREAST CANCER FEMALE
     Dosage: DATE OF SERVICE ON 19/JUN/2007,  31/JUL/2007, 11/SEP/2007, 25/SEP/2007
     Route: 042
     Dates: start: 20060919
  4. CARBOPLATIN. [Concomitant]
     Active Substance: CARBOPLATIN
  5. AVASTIN [Suspect]
     Active Substance: BEVACIZUMAB
     Indication: HAEMATOLOGICAL MALIGNANCY
  6. FEMARA [Concomitant]
     Active Substance: LETROZOLE
     Route: 065

REACTIONS (8)
  - Nausea [Recovered/Resolved]
  - Fatigue [Unknown]
  - Constipation [Unknown]
  - Vomiting [Unknown]
  - Back pain [Unknown]
  - Death [Fatal]
  - Somnolence [Unknown]
  - Bone disorder [Unknown]
